FAERS Safety Report 22295384 (Version 1)
Quarter: 2023Q2

REPORT INFORMATION
  Report Type: Spontaneous
  Country: US (occurrence: None)
  Receive Date: 20230505
  Receipt Date: 20230505
  Transmission Date: 20230722
  Serious: Yes (Other)
  Sender: FDA-Public Use
  Company Number: None

PATIENT
  Age: 10 Year
  Sex: Male

DRUGS (30)
  1. OPSUMIT [Suspect]
     Active Substance: MACITENTAN
     Indication: Pulmonary arterial hypertension
     Dosage: FREQUENCY : DAILY;?
     Route: 048
     Dates: start: 20170428
  2. REMODULIN [Concomitant]
     Active Substance: TREPROSTINIL
  3. SILDENAFIL [Concomitant]
     Active Substance: SILDENAFIL
  4. WARFARIN [Concomitant]
     Active Substance: WARFARIN
  5. FAMOTIDINE [Concomitant]
     Active Substance: FAMOTIDINE
  6. ONDANSETRON [Concomitant]
     Active Substance: ONDANSETRON
  7. FUROSEMIDE [Concomitant]
     Active Substance: FUROSEMIDE
  8. CORTEF [Concomitant]
     Active Substance: HYDROCORTISONE
  9. SERTRALINE [Concomitant]
     Active Substance: SERTRALINE HYDROCHLORIDE
  10. VITAMIN D2 [Concomitant]
     Active Substance: ERGOCALCIFEROL
  11. BUDESONIDE [Concomitant]
     Active Substance: BUDESONIDE
  12. OMEPRAZOLE [Concomitant]
     Active Substance: OMEPRAZOLE
  13. OXYCODONE [Concomitant]
     Active Substance: OXYCODONE
  14. Cyproheptadinel albuterol neb soln [Concomitant]
  15. Flucinonide top oint [Concomitant]
  16. ALBUTEROL SULFATE [Concomitant]
     Active Substance: ALBUTEROL SULFATE
  17. Symbicort HFA [Concomitant]
  18. PREDNISOLONE [Concomitant]
     Active Substance: PREDNISOLONE
  19. SPIRONOLACTONE [Concomitant]
     Active Substance: SPIRONOLACTONE
  20. TAC top cream [Concomitant]
  21. DERMA-SMOOTHE/FS [Concomitant]
     Active Substance: FLUOCINOLONE ACETONIDE
  22. FERROUS SULFATE [Concomitant]
     Active Substance: FERROUS SULFATE
  23. GABAPENTIN [Concomitant]
     Active Substance: GABAPENTIN
  24. IBUPROFEN [Concomitant]
     Active Substance: IBUPROFEN
  25. Lidocaine top oint [Concomitant]
  26. VITAMIN D3 [Concomitant]
     Active Substance: CHOLECALCIFEROL
  27. XOPENEX HFA [Concomitant]
     Active Substance: LEVALBUTEROL TARTRATE
  28. CETIRIZINE [Concomitant]
     Active Substance: CETIRIZINE HYDROCHLORIDE
  29. CALCIUM CARBONATE [Concomitant]
     Active Substance: CALCIUM CARBONATE
  30. VITAMINS [Concomitant]
     Active Substance: VITAMINS

REACTIONS (2)
  - Fall [None]
  - Head injury [None]

NARRATIVE: CASE EVENT DATE: 20230329
